FAERS Safety Report 5315048-2 (Version None)
Quarter: 2007Q2

REPORT INFORMATION
  Report Type: 
  Country: None (occurrence: None)
  Receive Date: 20070502
  Receipt Date: 20070430
  Transmission Date: 20071010
  Serious: Yes (Death)
  Sender: FDA-Public Use
  Company Number: 2006UW27759

PATIENT
  Age: 57 Year
  Sex: Male
  Weight: 79.5 kg

DRUGS (4)
  1. SEROQUEL [Suspect]
     Indication: DEPRESSION
     Route: 048
     Dates: start: 20050101
  2. SEROQUEL [Suspect]
     Indication: INSOMNIA
     Route: 048
     Dates: start: 20050101
  3. RISPERDAL [Concomitant]
  4. ZYPREXA [Concomitant]

REACTIONS (2)
  - DEATH [None]
  - DIABETES MELLITUS [None]
